FAERS Safety Report 4700975-7 (Version None)
Quarter: 2005Q2

REPORT INFORMATION
  Report Type: 
  Country: None (occurrence: None)
  Receive Date: 20050624
  Receipt Date: 20050609
  Transmission Date: 20051028
  Serious: Yes (Hospitalization)
  Sender: FDA-Public Use
  Company Number: US-2005-006139

PATIENT
  Age: 44 Year
  Sex: Female
  Weight: 62.6 kg

DRUGS (19)
  1. BETASERON [Suspect]
     Indication: RELAPSING-REMITTING MULTIPLE SCLEROSIS
     Dosage: 8 MIU, EVERY 2D, SUBCUTANEOUS
     Route: 058
     Dates: start: 20000630
  2. NEULASTA [Suspect]
     Indication: WHITE BLOOD CELL COUNT DECREASED
     Dates: start: 20050401
  3. COUMADIN [Concomitant]
  4. LEXAPRO [Concomitant]
  5. TEGRETOL [Concomitant]
  6. NEURONTIN [Concomitant]
  7. ZANAFLEX [Concomitant]
  8. NEXIUM /USA/ (ESOMEPRAZOLE MAGNESIUM) [Concomitant]
  9. OS-CAL (CALCIUM) [Concomitant]
  10. FOSAMAX [Concomitant]
  11. VALIUM [Concomitant]
  12. FOLTX (PYRIDOXINE) [Concomitant]
  13. BENICAR [Concomitant]
  14. TYLENOL W/ CODEINE NO. 3 [Concomitant]
  15. PERCOCET [Concomitant]
  16. XALATAN [Concomitant]
  17. ACTONEL [Concomitant]
  18. ZELNORM /USA/ (TEGASEROD) [Concomitant]
  19. NOVANTRON (MITOXANTRONE HYDROCHLORIDE, MITOXANTRONE) [Concomitant]

REACTIONS (9)
  - ANAEMIA [None]
  - CHILLS [None]
  - DEHYDRATION [None]
  - DIARRHOEA [None]
  - GASTROINTESTINAL HAEMORRHAGE [None]
  - PAIN [None]
  - PLEURAL EFFUSION [None]
  - PYREXIA [None]
  - WHITE BLOOD CELL COUNT DECREASED [None]
